FAERS Safety Report 13142345 (Version 4)
Quarter: 2017Q1

REPORT INFORMATION
  Report Type: Spontaneous
  Country: GB (occurrence: GB)
  Receive Date: 20170124
  Receipt Date: 20170201
  Transmission Date: 20170428
  Serious: Yes (Hospitalization)
  Sender: FDA-Public Use
  Company Number: GB-SA-2016SA238153

PATIENT
  Age: 16 Year
  Sex: Male

DRUGS (2)
  1. MYOZYME [Suspect]
     Active Substance: ALGLUCOSIDASE ALFA
     Route: 041
     Dates: end: 20170109
  2. MYOZYME [Suspect]
     Active Substance: ALGLUCOSIDASE ALFA
     Route: 041
     Dates: start: 20170119

REACTIONS (4)
  - Nasopharyngitis [Unknown]
  - Productive cough [Unknown]
  - Lower respiratory tract infection [Unknown]
  - Rhinorrhoea [Unknown]
